FAERS Safety Report 5384181-1 (Version None)
Quarter: 2007Q3

REPORT INFORMATION
  Report Type: 
  Country: None (occurrence: None)
  Receive Date: 20070711
  Receipt Date: 20070703
  Transmission Date: 20080115
  Serious: Yes (Hospitalization)
  Sender: FDA-Public Use
  Company Number: A0661954A

PATIENT
  Age: 44 Year
  Sex: Female
  Weight: 87.9 kg

DRUGS (2)
  1. PAZOPANIB [Suspect]
     Dosage: 400MG PER DAY
     Route: 048
     Dates: start: 20070616
  2. LAPATINIB [Suspect]
     Dosage: 1000MG PER DAY
     Route: 048
     Dates: start: 20070616

REACTIONS (5)
  - ASTHENIA [None]
  - HYPERSENSITIVITY [None]
  - PYREXIA [None]
  - RASH [None]
  - RHINITIS [None]
